FAERS Safety Report 4710536-1 (Version None)
Quarter: 2005Q3

REPORT INFORMATION
  Report Type: 
  Country: None (occurrence: None)
  Receive Date: 20050707
  Receipt Date: 20050629
  Transmission Date: 20060218
  Serious: Yes (Hospitalization)
  Sender: FDA-Public Use
  Company Number: 2005092047

PATIENT
  Age: 85 Year
  Sex: Male

DRUGS (7)
  1. SULPERAZON (SULBACTAM, CEFOPERAZONE) [Suspect]
     Indication: ILL-DEFINED DISORDER
     Dosage: 2 GRAM , INTRAVENOUS
     Route: 036
     Dates: start: 20050616, end: 20050619
  2. EPIRUBICIN [Concomitant]
  3. URSODIOL [Concomitant]
  4. MUCOSTA  (REBAMIPIDE) [Concomitant]
  5. GLAKAY (MENATETRENONE) [Concomitant]
  6. CONIEL (BENIDIPINE HYDROCHLORIDE) [Concomitant]
  7. STRONG NEO-MINOPHAEN C (AMINOACETIC ACID, CYSTEINE, GLYCYRRHIZIC ACID) [Concomitant]

REACTIONS (4)
  - DRUG ERUPTION [None]
  - ERYTHEMA MULTIFORME [None]
  - LIP BLISTER [None]
  - ORAL MUCOSAL BLISTERING [None]
